FAERS Safety Report 4283016-8 (Version None)
Quarter: 2004Q1

REPORT INFORMATION
  Report Type: 
  Country: None (occurrence: None)
  Receive Date: 20040130
  Receipt Date: 20040122
  Transmission Date: 20041129
  Serious: Yes (Hospitalization)
  Sender: FDA-Public Use
  Company Number: WAES 0401USA01663

PATIENT
  Sex: Male

DRUGS (3)
  1. ULTRACET [Concomitant]
  2. VIOXX [Suspect]
     Indication: BACK PAIN
     Route: 048
     Dates: start: 20040119
  3. ZANAFLEX [Suspect]
     Indication: MUSCLE RELAXANT THERAPY
     Dates: start: 20040119, end: 20040101

REACTIONS (7)
  - DIZZINESS [None]
  - DRY MOUTH [None]
  - HYPERHIDROSIS [None]
  - HYPOTENSION [None]
  - SOMNOLENCE [None]
  - SPEECH DISORDER [None]
  - VISION BLURRED [None]
